FAERS Safety Report 4337152-8 (Version None)
Quarter: 2004Q2

REPORT INFORMATION
  Report Type: 
  Country: None (occurrence: None)
  Receive Date: 20040408
  Receipt Date: 20040329
  Transmission Date: 20050107
  Serious: Yes (Death)
  Sender: FDA-Public Use
  Company Number: HQWYE287431MAR04

PATIENT
  Sex: Female

DRUGS (9)
  1. AVLOCARDYL   (PROPRANOLOL HYDROCHLORIDE) [Suspect]
     Dosage: TRANSPLACENTAL
     Route: 064
  2. ATARAX [Suspect]
     Dosage: TRANSPLACENTAL
     Route: 064
  3. BUMETANIDE [Suspect]
     Dosage: TRANSPLACENTAL
     Route: 064
  4. ACETAMINOPHEN [Suspect]
     Dosage: TRANSPLACENTAL
     Route: 064
  5. NEORECORMON (EPOETIN BETA,) [Suspect]
     Dosage: TRANSPLACENTAL
     Route: 064
  6. PROGRAF [Suspect]
     Dosage: TRANSPLACENTAL
     Route: 064
  7. FOLIC ACID [Suspect]
     Indication: HYPERHOMOCYSTEINAEMIA
     Dosage: TRANSPLACENTAL
     Route: 064
     Dates: start: 20030601
  8. TAREG (VALSARTAN) [Suspect]
     Indication: HYPERTENSION
     Dosage: 2 DOSE 1X PER 1 DAY TRANSPLACENTAL
     Route: 064
     Dates: start: 20030315, end: 20040114
  9. ZOMIG [Suspect]
     Dosage: TRANSPLACENTAL
     Route: 064

REACTIONS (7)
  - ABORTION INDUCED [None]
  - CONGENITAL INTESTINAL MALFORMATION [None]
  - DRUG EXPOSURE DURING PREGNANCY [None]
  - FOETAL MOVEMENTS DECREASED [None]
  - GROWTH RETARDATION [None]
  - KIDNEY MALFORMATION [None]
  - STRABISMUS [None]
